FAERS Safety Report 7364159-9 (Version None)
Quarter: 2011Q1

REPORT INFORMATION
  Report Type: 
  Country: None (occurrence: None)
  Receive Date: 20110316
  Receipt Date: 20110316
  Transmission Date: 20110831
  Serious: Yes (Life-Threatening, Hospitalization, Disabling)
  Sender: FDA-Public Use
  Company Number: None

PATIENT
  Age: 47 Year
  Sex: Male
  Weight: 123.832 kg

DRUGS (4)
  1. CANCELLOUS BONE SCREWS [Concomitant]
  2. GABAPENTIN [Suspect]
     Indication: MUSCLE RELAXANT THERAPY
     Dosage: GABAPENTIN ONCE/DAY ORAL
     Route: 048
     Dates: start: 20060101
  3. HYDROXYZINE [Suspect]
     Indication: PAIN
     Dosage: HYDROXYZINE 7.5MG 2X/DAY ORAL
     Route: 048
     Dates: start: 20060101
  4. HYDROXYZINE [Suspect]
     Indication: MUSCLE RELAXANT THERAPY
     Dosage: HYDROXYZINE 7.5MG 2X/DAY ORAL
     Route: 048
     Dates: start: 20060101

REACTIONS (3)
  - BONE PAIN [None]
  - PROCEDURAL PAIN [None]
  - NECK PAIN [None]
